FAERS Safety Report 6915323-1 (Version None)
Quarter: 2010Q3

REPORT INFORMATION
  Report Type: 
  Country: None (occurrence: None)
  Receive Date: 20100806
  Receipt Date: 20100806
  Transmission Date: 20110219
  Serious: Yes (Other)
  Sender: FDA-Public Use
  Company Number: None

PATIENT
  Age: 34 Year
  Sex: Female
  Weight: 62.5964 kg

DRUGS (1)
  1. ERGOCALCIFEROL [Suspect]
     Indication: VITAMIN D DECREASED
     Dosage: 50,000 IU ONCE A WEEK PO
     Route: 048
     Dates: start: 20090718, end: 20091010

REACTIONS (1)
  - HYPERSENSITIVITY [None]
